FAERS Safety Report 8938537 (Version 1)
Quarter: 2012Q4

REPORT INFORMATION
  Report Type: 
  Country: CA (occurrence: CA)
  Receive Date: 20121130
  Receipt Date: 20121130
  Transmission Date: 20130627
  Serious: Yes (Other)
  Sender: FDA-Public Use
  Company Number: CA-ROCHE-1161990

PATIENT
  Sex: Male
  Weight: 72.64 kg

DRUGS (1)
  1. OMALIZUMAB [Suspect]
     Indication: ASTHMA
     Route: 065
     Dates: start: 20070122

REACTIONS (5)
  - Asthma [Not Recovered/Not Resolved]
  - Injection site urticaria [Recovering/Resolving]
  - Injection site rash [Unknown]
  - Pruritus [Unknown]
  - Urticaria [Unknown]
